FAERS Safety Report 21556188 (Version 1)
Quarter: 2022Q4

REPORT INFORMATION
  Report Type: Spontaneous
  Country: NL (occurrence: NL)
  Receive Date: 20221104
  Receipt Date: 20221104
  Transmission Date: 20230113
  Serious: Yes (Hospitalization)
  Sender: FDA-Public Use
  Company Number: NL-MYLANLABS-2022M1120781

PATIENT
  Age: 5 Year
  Sex: Female

DRUGS (17)
  1. ASPIRIN [Suspect]
     Active Substance: ASPIRIN
     Indication: Antiplatelet therapy
     Dosage: UNK, HIGH DOSE
     Route: 065
  2. ASPIRIN [Suspect]
     Active Substance: ASPIRIN
     Indication: Thrombosis
     Dosage: 3 MILLIGRAM/KILOGRAM
     Route: 065
  3. ASPIRIN [Suspect]
     Active Substance: ASPIRIN
     Dosage: 5 MILLIGRAM/KILOGRAM
     Route: 065
  4. NADROPARIN [Suspect]
     Active Substance: NADROPARIN
     Indication: Anticoagulant therapy
     Dosage: UNK
     Route: 065
  5. NADROPARIN [Suspect]
     Active Substance: NADROPARIN
     Indication: Thrombosis
  6. PRASUGREL [Suspect]
     Active Substance: PRASUGREL
     Indication: Antiplatelet therapy
     Dosage: UNK
     Route: 048
  7. PRASUGREL [Suspect]
     Active Substance: PRASUGREL
     Indication: Thrombosis
  8. CLOPIDOGREL [Suspect]
     Active Substance: CLOPIDOGREL BISULFATE
     Indication: Antiplatelet therapy
     Dosage: 1 MILLIGRAM/KILOGRAM
     Route: 065
  9. CLOPIDOGREL [Suspect]
     Active Substance: CLOPIDOGREL BISULFATE
     Indication: Thrombosis
  10. IMMUNE GLOBULIN NOS [Suspect]
     Active Substance: IMMUNE GLOBULIN NOS
     Indication: Thrombosis
     Dosage: (2G/KG ONCE)
     Route: 042
  11. ACENOCOUMAROL [Suspect]
     Active Substance: ACENOCOUMAROL
     Indication: Anticoagulant therapy
     Dosage: UNK
     Route: 048
  12. ACENOCOUMAROL [Suspect]
     Active Substance: ACENOCOUMAROL
     Indication: Thrombosis
  13. HEPARIN [Suspect]
     Active Substance: HEPARIN SODIUM
     Indication: Anticoagulant therapy
     Dosage: UNK
     Route: 065
  14. HEPARIN [Suspect]
     Active Substance: HEPARIN SODIUM
     Indication: Thrombosis
  15. ALTEPLASE [Suspect]
     Active Substance: ALTEPLASE
     Indication: Thrombosis
     Dosage: UNK
     Route: 065
  16. WARFARIN [Concomitant]
     Active Substance: WARFARIN
     Indication: Anticoagulant therapy
     Dosage: UNK
     Route: 065
  17. NITROGLYCERIN [Concomitant]
     Active Substance: NITROGLYCERIN
     Indication: Product used for unknown indication
     Dosage: UNK
     Route: 065

REACTIONS (1)
  - Drug ineffective [Unknown]
